FAERS Safety Report 16675487 (Version 1)
Quarter: 2019Q3

REPORT INFORMATION
  Report Type: Spontaneous
  Country: MY (occurrence: MY)
  Receive Date: 20190806
  Receipt Date: 20190806
  Transmission Date: 20191004
  Serious: Yes (Other)
  Sender: FDA-Public Use
  Company Number: PHHY2019MY181108

PATIENT
  Sex: Female

DRUGS (1)
  1. TOPOTECAN [Suspect]
     Active Substance: TOPOTECAN HYDROCHLORIDE
     Indication: OVARIAN CANCER METASTATIC
     Dosage: UNK
     Route: 065
     Dates: start: 20190519

REACTIONS (3)
  - Malignant neoplasm progression [Unknown]
  - Bone marrow failure [Unknown]
  - Ovarian cancer metastatic [Unknown]
